FAERS Safety Report 18260895 (Version 1)
Quarter: 2020Q3

REPORT INFORMATION
  Report Type: Spontaneous
  Country: US (occurrence: US)
  Receive Date: 20200914
  Receipt Date: 20200914
  Transmission Date: 20201103
  Serious: Yes (Hospitalization)
  Sender: FDA-Public Use
  Company Number: US-LUPIN PHARMACEUTICALS INC.-2020-05885

PATIENT
  Age: 57 Year
  Sex: Female

DRUGS (2)
  1. CALCIUM [Suspect]
     Active Substance: CALCIUM
     Indication: NAUSEA
     Dosage: UNK (DOSE INCREASED)
     Route: 048
  2. CALCIUM [Suspect]
     Active Substance: CALCIUM
     Indication: GASTROOESOPHAGEAL REFLUX DISEASE
     Dosage: 1000 MILLIGRAM, BID (FORMULATION: TABLET)
     Route: 048

REACTIONS (1)
  - False positive investigation result [Unknown]
